FAERS Safety Report 8403577-4 (Version None)
Quarter: 2012Q2

REPORT INFORMATION
  Report Type: 
  Country: None (occurrence: None)
  Receive Date: 20120601
  Receipt Date: 20120525
  Transmission Date: 20120825
  Serious: Yes (Disabling, Other)
  Sender: FDA-Public Use
  Company Number: US-JNJFOC-20120519569

PATIENT
  Sex: Female
  Weight: 103.42 kg

DRUGS (2)
  1. LEVAQUIN [Suspect]
     Indication: RESPIRATORY TRACT INFECTION VIRAL
     Route: 048
     Dates: start: 20100717, end: 20100701
  2. PREDNISONE TAB [Suspect]
     Indication: LUNG INFECTION
     Dosage: STOPPED IN DEC
     Route: 048
     Dates: start: 20100717

REACTIONS (20)
  - ROTATOR CUFF SYNDROME [None]
  - DYSPNOEA [None]
  - PHARYNGEAL OEDEMA [None]
  - PARAESTHESIA [None]
  - ABASIA [None]
  - INFLAMMATION [None]
  - ASTHENIA [None]
  - LOCAL SWELLING [None]
  - OEDEMA MOUTH [None]
  - SWOLLEN TONGUE [None]
  - AFFECTIVE DISORDER [None]
  - NEUROPATHY PERIPHERAL [None]
  - HYPOXIA [None]
  - SWELLING FACE [None]
  - DISABILITY [None]
  - TENDONITIS [None]
  - RASH [None]
  - LIP SWELLING [None]
  - HYPOAESTHESIA [None]
  - WEIGHT INCREASED [None]
